FAERS Safety Report 6914865-2 (Version None)
Quarter: 2010Q3

REPORT INFORMATION
  Report Type: 
  Country: None (occurrence: None)
  Receive Date: 20100809
  Receipt Date: 20100730
  Transmission Date: 20110219
  Serious: Yes (Hospitalization)
  Sender: FDA-Public Use
  Company Number: BR-ABBOTT-10P-020-0642001-00

PATIENT
  Sex: Female
  Weight: 92 kg

DRUGS (10)
  1. HUMIRA [Suspect]
     Indication: RHEUMATOID ARTHRITIS
     Route: 058
     Dates: start: 20090101
  2. LEFLUNOMIDE [Concomitant]
     Indication: RHEUMATOID ARTHRITIS
     Route: 048
     Dates: start: 20020101
  3. ISONIAZID [Concomitant]
     Indication: ANTIBIOTIC PROPHYLAXIS
     Route: 048
  4. NAPROXEN [Concomitant]
     Indication: RHEUMATOID ARTHRITIS
     Route: 048
     Dates: start: 20020101
  5. NAPROXEN [Concomitant]
     Indication: MYALGIA
  6. ATENOLOL [Concomitant]
     Indication: HYPERTENSION
     Route: 048
  7. CAPTOPRIL [Concomitant]
     Indication: HYPERTENSION
     Route: 048
  8. NIFEDIPINE [Concomitant]
     Indication: HYPERTENSION
     Route: 048
  9. AAS INFANTIL [Concomitant]
     Indication: HYPERTENSION
     Route: 048
  10. ASCORBIC ACID [Concomitant]
     Indication: HYPERTENSION
     Route: 048

REACTIONS (17)
  - BLOOD PRESSURE ABNORMAL [None]
  - CARDIAC DISORDER [None]
  - CHEST DISCOMFORT [None]
  - CHEST PAIN [None]
  - DEPRESSION [None]
  - DIZZINESS [None]
  - DYSPNOEA [None]
  - EPISTAXIS [None]
  - HEADACHE [None]
  - HYPERTENSION [None]
  - INJECTION SITE DISCOLOURATION [None]
  - INJECTION SITE NODULE [None]
  - INJECTION SITE SWELLING [None]
  - PAIN [None]
  - PALPITATIONS [None]
  - PRURITUS [None]
  - VERTIGO [None]
